FAERS Safety Report 17852582 (Version 2)
Quarter: 2020Q2

REPORT INFORMATION
  Report Type: Spontaneous
  Country: US (occurrence: US)
  Receive Date: 20200602
  Receipt Date: 20200602
  Transmission Date: 20200714
  Serious: Yes (Life-Threatening, Hospitalization, Other)
  Sender: FDA-Public Use
  Company Number: US-GE HEALTHCARE-OMPQ-PR-1512L-3106

PATIENT
  Age: 44 Year
  Sex: Female

DRUGS (5)
  1. VISIPAQUE [Suspect]
     Active Substance: IODIXANOL
     Indication: HAEMATURIA
     Dosage: 70 ML, SINGLE
     Route: 065
  2. OMNIPAQUE [Suspect]
     Active Substance: IOHEXOL
     Indication: ANGIOCARDIOGRAM
  3. OMNIPAQUE [Suspect]
     Active Substance: IOHEXOL
     Indication: CORONARY ARTERY DISEASE
     Dosage: 70 ML, SINGLE
     Route: 065
  4. VISIPAQUE [Suspect]
     Active Substance: IODIXANOL
     Indication: COMPUTERISED TOMOGRAM
  5. OMNIPAQUE [Suspect]
     Active Substance: IOHEXOL
     Indication: ANGINA UNSTABLE
     Dosage: 190 ML, SINGLE
     Route: 065

REACTIONS (1)
  - Contrast encephalopathy [Recovered/Resolved]
